FAERS Safety Report 19021494 (Version 1)
Quarter: 2021Q1

REPORT INFORMATION
  Report Type: Spontaneous
  Country: US (occurrence: US)
  Receive Date: 20210317
  Receipt Date: 20210317
  Transmission Date: 20210420
  Serious: No
  Sender: FDA-Public Use
  Company Number: US-PERRIGO-21US001343

PATIENT
  Age: 31 Year
  Sex: Female
  Weight: 90.7 kg

DRUGS (9)
  1. NICOTINE POLACRILEX [Suspect]
     Active Substance: NICOTINE
     Indication: SMOKING CESSATION THERAPY
     Dosage: 4 MG, BID
     Route: 002
     Dates: start: 202011
  2. WELLBUTRIN [Concomitant]
     Active Substance: BUPROPION HYDROCHLORIDE
     Indication: DEPRESSION
     Dosage: UNK
     Route: 065
  3. WELLBUTRIN [Concomitant]
     Active Substance: BUPROPION HYDROCHLORIDE
     Indication: SCHIZOPHRENIA
  4. SEROQUEL [Concomitant]
     Active Substance: QUETIAPINE FUMARATE
     Indication: DEPRESSION
     Dosage: UNK
     Route: 065
  5. PRONETALOL. [Concomitant]
     Active Substance: PRONETALOL
     Indication: SCHIZOPHRENIA
  6. SEROQUEL [Concomitant]
     Active Substance: QUETIAPINE FUMARATE
     Indication: SCHIZOPHRENIA
  7. GEODON [Concomitant]
     Active Substance: ZIPRASIDONE HYDROCHLORIDE\ZIPRASIDONE MESYLATE
     Indication: DEPRESSION
     Dosage: UNK
     Route: 065
  8. GEODON [Concomitant]
     Active Substance: ZIPRASIDONE HYDROCHLORIDE\ZIPRASIDONE MESYLATE
     Indication: SCHIZOPHRENIA
  9. PRONETALOL. [Concomitant]
     Active Substance: PRONETALOL
     Indication: DEPRESSION
     Dosage: UNK
     Route: 065

REACTIONS (1)
  - Gastrooesophageal reflux disease [Not Recovered/Not Resolved]

NARRATIVE: CASE EVENT DATE: 20210119
